FAERS Safety Report 7225418-3 (Version None)
Quarter: 2011Q1

REPORT INFORMATION
  Report Type: 
  Country: None (occurrence: None)
  Receive Date: 20110113
  Receipt Date: 20110103
  Transmission Date: 20110831
  Serious: Yes (Other)
  Sender: FDA-Public Use
  Company Number: US-SANOFI-AVENTIS-2011SA000694

PATIENT
  Age: 76 Year
  Sex: Male

DRUGS (3)
  1. LISINOPRIL [Concomitant]
  2. OPTICLICK [Suspect]
     Indication: TYPE 2 DIABETES MELLITUS
  3. LANTUS [Suspect]
     Indication: TYPE 2 DIABETES MELLITUS
     Dosage: 3 UNITS IN AM AND 6 UNITS IN PM
     Route: 058

REACTIONS (2)
  - UPPER LIMB FRACTURE [None]
  - FALL [None]
